FAERS Safety Report 12515595 (Version 1)
Quarter: 2016Q2

REPORT INFORMATION
  Report Type: Spontaneous
  Country: AU (occurrence: AU)
  Receive Date: 20160630
  Receipt Date: 20160630
  Transmission Date: 20160815
  Serious: Yes (Other)
  Sender: FDA-Public Use
  Company Number: AU-009507513-1606AUS012188

PATIENT
  Age: 47 Year
  Sex: Male

DRUGS (1)
  1. MIRTAZAPINE GA [Suspect]
     Active Substance: MIRTAZAPINE
     Dosage: UNK, QD
     Route: 048
     Dates: start: 20160125, end: 20160125

REACTIONS (3)
  - Hyperlipidaemia [Not Recovered/Not Resolved]
  - Hepatitis [Not Recovered/Not Resolved]
  - Weight increased [Not Recovered/Not Resolved]

NARRATIVE: CASE EVENT DATE: 20160224
